FAERS Safety Report 13956897 (Version 1)
Quarter: 2017Q3

REPORT INFORMATION
  Report Type: Spontaneous
  Country: HR (occurrence: HR)
  Receive Date: 20170912
  Receipt Date: 20170912
  Transmission Date: 20171128
  Serious: Yes (Death, Other)
  Sender: FDA-Public Use
  Company Number: HR-ALVOGEN-2017-ALVOGEN-093437

PATIENT
  Age: 75 Year
  Sex: Female

DRUGS (4)
  1. CYCLOPHOSPHAMIDE. [Suspect]
     Active Substance: CYCLOPHOSPHAMIDE
     Indication: ANGIOIMMUNOBLASTIC T-CELL LYMPHOMA STAGE III
     Dates: start: 201507, end: 201512
  2. VINCRISTINE [Suspect]
     Active Substance: VINCRISTINE
     Indication: ANGIOIMMUNOBLASTIC T-CELL LYMPHOMA STAGE III
     Dates: start: 201507, end: 201512
  3. DOXORUBICIN [Suspect]
     Active Substance: DOXORUBICIN
     Indication: ANGIOIMMUNOBLASTIC T-CELL LYMPHOMA STAGE III
     Dates: start: 201507, end: 201512
  4. METHYLPREDNISOLONE. [Suspect]
     Active Substance: METHYLPREDNISOLONE
     Indication: ANGIOIMMUNOBLASTIC T-CELL LYMPHOMA STAGE III
     Dates: start: 201507, end: 201512

REACTIONS (2)
  - Mycobacterial infection [Fatal]
  - Respiratory failure [Fatal]
